FAERS Safety Report 15677824 (Version 1)
Quarter: 2018Q4

REPORT INFORMATION
  Report Type: Spontaneous
  Country: US (occurrence: US)
  Receive Date: 20181130
  Receipt Date: 20181130
  Transmission Date: 20190205
  Serious: Yes (Hospitalization, Other)
  Sender: FDA-Public Use
  Company Number: US-ELI_LILLY_AND_COMPANY-US201811009813

PATIENT
  Sex: Female

DRUGS (2)
  1. HUMALOG [Suspect]
     Active Substance: INSULIN LISPRO
     Indication: PRODUCT USED FOR UNKNOWN INDICATION
     Dosage: UNK, UNKNOWN
     Route: 065
  2. HUMALOG [Suspect]
     Active Substance: INSULIN LISPRO
     Indication: PRODUCT USED FOR UNKNOWN INDICATION
     Dosage: UNK, UNKNOWN
     Route: 065
     Dates: start: 2011

REACTIONS (8)
  - Hypersomnia [Recovering/Resolving]
  - Dizziness [Recovering/Resolving]
  - Chest pain [Unknown]
  - Glycosylated haemoglobin increased [Unknown]
  - Decreased interest [Recovering/Resolving]
  - Cataract [Unknown]
  - Blood glucose increased [Recovering/Resolving]
  - Intentional product misuse [Recovered/Resolved]
